FAERS Safety Report 8260869 (Version 3)
Quarter: 2012Q4

REPORT INFORMATION
  Report Type: 
  Country: DK (occurrence: DK)
  Receive Date: 20111123
  Receipt Date: 20121019
  Transmission Date: 20130627
  Serious: Yes (Hospitalization, Other)
  Sender: FDA-Public Use
  Company Number: DK-PFIZER INC-2011166338

PATIENT
  Age: 61 Year
  Sex: Female
  Weight: 40 kg

DRUGS (5)
  1. CHAMPIX [Suspect]
     Indication: SMOKING CESSATION THERAPY
     Dosage: 1 mg, UNK
     Route: 048
     Dates: start: 20110601, end: 20110610
  2. APOZEPAM [Concomitant]
     Dosage: UNK
  3. STILNOCT [Concomitant]
     Dosage: UNK
  4. CIPRALEX [Concomitant]
     Dosage: UNK
  5. ELTROXIN [Concomitant]
     Dosage: UNK

REACTIONS (15)
  - Stevens-Johnson syndrome [Recovering/Resolving]
  - Drug eruption [Recovering/Resolving]
  - Pharyngeal oedema [Unknown]
  - Asthma [Unknown]
  - Bronchitis [Unknown]
  - Oedema peripheral [Unknown]
  - Gingival disorder [Unknown]
  - Pain in extremity [Unknown]
  - Dyskinesia [Unknown]
  - Dizziness [Unknown]
  - Fear of death [Unknown]
  - Metabolic disorder [Unknown]
  - Heart rate increased [Unknown]
  - Skin fissures [Unknown]
  - Weight decreased [Unknown]
